FAERS Safety Report 16366637 (Version 1)
Quarter: 2019Q2

REPORT INFORMATION
  Report Type: Spontaneous
  Country: US (occurrence: US)
  Receive Date: 20190529
  Receipt Date: 20190529
  Transmission Date: 20190711
  Serious: Yes (Life-Threatening, Hospitalization)
  Sender: FDA-Public Use
  Company Number: US-PERRIGO-19US006328

PATIENT

DRUGS (2)
  1. ACETAMINOPHEN. [Suspect]
     Active Substance: ACETAMINOPHEN
     Indication: FOETAL EXPOSURE DURING PREGNANCY
     Dosage: UNKNOWN, UNKNOWN
     Route: 064
  2. ASA EC [Suspect]
     Active Substance: ASPIRIN
     Indication: FOETAL EXPOSURE DURING PREGNANCY
     Dosage: UNKNOWN, UNKNOWN
     Route: 064

REACTIONS (3)
  - Foetal acidosis [Recovered/Resolved]
  - Foetal exposure during pregnancy [Recovered/Resolved]
  - Tachycardia foetal [Recovered/Resolved]
